FAERS Safety Report 10477478 (Version 1)
Quarter: 2014Q3

REPORT INFORMATION
  Report Type: Spontaneous
  Country: US (occurrence: US)
  Receive Date: 20140926
  Receipt Date: 20140926
  Transmission Date: 20150326
  Serious: No
  Sender: FDA-Public Use
  Company Number: US-009507513-1409USA011135

PATIENT
  Sex: Male

DRUGS (1)
  1. NASONEX [Suspect]
     Active Substance: MOMETASONE FUROATE
     Dosage: UNK
     Route: 045

REACTIONS (6)
  - Nausea [Unknown]
  - Wrong technique in drug usage process [Unknown]
  - Oropharyngeal pain [Unknown]
  - Chest pain [Unknown]
  - Dysgeusia [Unknown]
  - Nasal discomfort [Unknown]
